FAERS Safety Report 8404324-2 (Version None)
Quarter: 2012Q2

REPORT INFORMATION
  Report Type: 
  Country: None (occurrence: None)
  Receive Date: 20120601
  Receipt Date: 20120524
  Transmission Date: 20120825
  Serious: Yes (Death)
  Sender: FDA-Public Use
  Company Number: US-ABBOTT-12P-163-0889846-00

PATIENT
  Sex: Female

DRUGS (12)
  1. DICLOFENAC SODIUM [Concomitant]
     Indication: ARTHRITIS
     Dates: start: 20040101
  2. HYDROXYZINE [Concomitant]
     Indication: SEASONAL ALLERGY
     Dates: start: 20030101
  3. ENTOCORT EC [Concomitant]
     Indication: PRODUCT USED FOR UNKNOWN INDICATION
     Dates: end: 20110720
  4. ESSENTIAL MINERAL [Concomitant]
     Indication: ROUTINE HEALTH MAINTENANCE
     Dates: start: 19960101
  5. PROGRAF [Concomitant]
     Indication: PRODUCT USED FOR UNKNOWN INDICATION
     Dates: end: 20110720
  6. NASONEX [Concomitant]
     Indication: SEASONAL ALLERGY
     Dosage: 1 SPRAY
     Dates: start: 20030101
  7. ACETAMINOPHEN [Concomitant]
     Indication: ARTHRITIS
     Dates: start: 20040101
  8. FLOVENT [Concomitant]
     Indication: SEASONAL ALLERGY
     Dates: start: 20030101
  9. HUMIRA [Suspect]
     Indication: COLITIS ULCERATIVE
     Route: 058
     Dates: start: 20080110, end: 20081113
  10. CARTIA XT [Concomitant]
     Indication: HYPERTENSION
     Dates: start: 20040101
  11. GLUCOSAMINE/MSM [Concomitant]
     Indication: ARTHRITIS
     Dates: start: 20040101
  12. PREMARIN [Concomitant]
     Indication: HORMONE REPLACEMENT THERAPY
     Dates: start: 20080123

REACTIONS (1)
  - CARDIO-RESPIRATORY ARREST [None]
